FAERS Safety Report 17042224 (Version 6)
Quarter: 2020Q1

REPORT INFORMATION
  Report Type: Spontaneous
  Country: US (occurrence: US)
  Receive Date: 20191118
  Receipt Date: 20200205
  Transmission Date: 20200409
  Serious: Yes (Hospitalization, Other)
  Sender: FDA-Public Use
  Company Number: US-SUN PHARMACEUTICAL INDUSTRIES LTD-2019R1-227361

PATIENT
  Sex: Female

DRUGS (2)
  1. ADEMPAS [Suspect]
     Active Substance: RIOCIGUAT
     Indication: PRODUCT USED FOR UNKNOWN INDICATION
     Route: 065
  2. AMBRISENTAN [Suspect]
     Active Substance: AMBRISENTAN
     Indication: PRODUCT USED FOR UNKNOWN INDICATION
     Dosage: 10 MILLIGRAM, QD
     Route: 048
     Dates: start: 20190820

REACTIONS (7)
  - Drug ineffective [Unknown]
  - Pain in jaw [Unknown]
  - Palpitations [Not Recovered/Not Resolved]
  - Respiratory tract infection [Recovered/Resolved]
  - Dizziness [Unknown]
  - Headache [Unknown]
  - Respiratory failure [Unknown]

NARRATIVE: CASE EVENT DATE: 2019
